FAERS Safety Report 5341205-5 (Version None)
Quarter: 2007Q2

REPORT INFORMATION
  Report Type: 
  Country: None (occurrence: None)
  Receive Date: 20070405
  Receipt Date: 20061127
  Transmission Date: 20071010
  Serious: No
  Sender: FDA-Public Use
  Company Number: US200611004771

PATIENT
  Sex: Female

DRUGS (1)
  1. CYMBALTA [Suspect]
     Indication: PAIN IN EXTREMITY
     Dosage: ORAL
     Route: 048
     Dates: start: 20061101

REACTIONS (4)
  - BURNING SENSATION [None]
  - HYPOAESTHESIA [None]
  - INSOMNIA [None]
  - PARAESTHESIA [None]
